FAERS Safety Report 8548601-3 (Version None)
Quarter: 2012Q3

REPORT INFORMATION
  Report Type: 
  Country: None (occurrence: None)
  Receive Date: 20120730
  Receipt Date: 20120730
  Transmission Date: 20120928
  Serious: Yes (Hospitalization)
  Sender: FDA-Public Use
  Company Number: None

PATIENT
  Sex: Female

DRUGS (1)
  1. MOBIC [Suspect]
     Indication: ARTHRALGIA
     Dosage: 15 MG ONCE A DAY PO ONE TIME
     Route: 048
     Dates: start: 20120713

REACTIONS (2)
  - HAEMORRHAGE [None]
  - GASTRIC ULCER [None]
